FAERS Safety Report 6035716-7 (Version None)
Quarter: 2009Q1

REPORT INFORMATION
  Report Type: 
  Country: None (occurrence: None)
  Receive Date: 20090112
  Receipt Date: 20090112
  Transmission Date: 20090719
  Serious: Yes (Other)
  Sender: FDA-Public Use
  Company Number: None

PATIENT
  Age: 20 Year
  Sex: Male
  Weight: 95.2554 kg

DRUGS (1)
  1. SINGULAIR [Suspect]
     Indication: ASTHMA
     Dates: start: 20010101, end: 20081101

REACTIONS (9)
  - ANGER [None]
  - ANHEDONIA [None]
  - ANXIETY [None]
  - IMPAIRED WORK ABILITY [None]
  - MOOD SWINGS [None]
  - PARTNER STRESS [None]
  - PERSONALITY CHANGE [None]
  - PERSONALITY DISORDER [None]
  - SCREAMING [None]
